FAERS Safety Report 12684449 (Version 1)
Quarter: 2016Q3

REPORT INFORMATION
  Report Type: Spontaneous
  Country: US (occurrence: US)
  Receive Date: 20160825
  Receipt Date: 20160825
  Transmission Date: 20161109
  Serious: Yes (Other)
  Sender: FDA-Public Use
  Company Number: PHEH2016US020654

PATIENT
  Sex: Male

DRUGS (1)
  1. ENTRESTO [Suspect]
     Active Substance: SACUBITRIL\VALSARTAN
     Indication: CARDIAC FAILURE
     Dosage: 50 MG (24/26) BID, (ONE IN THE MORNING AND ONE IN THE EVENING)
     Route: 065

REACTIONS (8)
  - Blood pressure decreased [Unknown]
  - Cerebrovascular accident [Unknown]
  - Thought blocking [Unknown]
  - Anxiety [Unknown]
  - Tremor [Unknown]
  - Dyskinesia [Unknown]
  - Disorganised speech [Unknown]
  - Dizziness [Unknown]
